FAERS Safety Report 9076048 (Version 1)
Quarter: 2013Q1

REPORT INFORMATION
  Report Type: Spontaneous
  Country: US (occurrence: US)
  Receive Date: 20130129
  Receipt Date: 20130129
  Transmission Date: 20140127
  Serious: Yes (Other)
  Sender: FDA-Public Use
  Company Number: CHPA2013US001585

PATIENT
  Age: 66 Year
  Sex: Male

DRUGS (3)
  1. EXCEDRIN EXTRA STRENGTH [Suspect]
     Indication: HANGOVER
     Dosage: 2 CAPLETS ONCE PER DAY
     Route: 048
  2. ZOCOR [Concomitant]
     Indication: BLOOD CHOLESTEROL
  3. DIURETICS [Concomitant]

REACTIONS (4)
  - Aneurysm [Unknown]
  - Hypertension [Unknown]
  - Off label use [Unknown]
  - Incorrect drug administration duration [Unknown]
